FAERS Safety Report 17326336 (Version 4)
Quarter: 2020Q2

REPORT INFORMATION
  Report Type: Report from Study
  Country: None (occurrence: FR)
  Receive Date: 20200127
  Receipt Date: 20200501
  Transmission Date: 20200713
  Serious: Yes (Life-Threatening, Hospitalization, Disabling, Other)
  Sender: FDA-Public Use
  Company Number: FR-ABBVIE-20K-056-3249926-00

PATIENT
  Age: 73 Year
  Sex: Male
  Weight: 83 kg

DRUGS (11)
  1. QUETIAPINE. [Concomitant]
     Active Substance: QUETIAPINE
     Indication: COGNITIVE DISORDER
     Route: 048
  2. PARACETAMOL [Concomitant]
     Active Substance: ACETAMINOPHEN
     Indication: PAIN MANAGEMENT
  3. DUODOPA [Suspect]
     Active Substance: CARBIDOPA\LEVODOPA
     Indication: COGNITIVE DISORDER
  4. LOXAPAC [Concomitant]
     Active Substance: LOXAPINE
     Indication: AGITATION
     Route: 030
  5. QUETIAPINE. [Concomitant]
     Active Substance: QUETIAPINE
     Indication: BEHAVIOUR DISORDER
  6. PANTOPRAZOLE [Concomitant]
     Active Substance: PANTOPRAZOLE
     Indication: PRODUCT USED FOR UNKNOWN INDICATION
     Route: 048
  7. NORSET [Concomitant]
     Active Substance: MIRTAZAPINE
     Indication: PRODUCT USED FOR UNKNOWN INDICATION
     Route: 048
  8. DUODOPA [Suspect]
     Active Substance: CARBIDOPA\LEVODOPA
     Indication: PARKINSON^S DISEASE
     Dosage: 100 MG/H DAY DOSE; 30 MG/H NIGHT DOSE
     Route: 050
     Dates: start: 20190220, end: 201905
  9. ROTIGOTINE [Concomitant]
     Active Substance: ROTIGOTINE
     Indication: RESTLESS LEGS SYNDROME
     Route: 062
  10. DUODOPA [Suspect]
     Active Substance: CARBIDOPA\LEVODOPA
     Indication: ON AND OFF PHENOMENON
     Dosage: 102 MG/H DAY DOSE; 60 MG/H NIGHT DOSE
     Route: 050
     Dates: start: 201905, end: 202001
  11. LEVODOPA/CARBIDOPA [Concomitant]
     Active Substance: CARBIDOPA\LEVODOPA
     Indication: PARKINSON^S DISEASE
     Dosage: 100 MG LEVODOPA / 10 MG CARBIDOPA
     Route: 048

REACTIONS (2)
  - Goitre [Unknown]
  - Bladder cancer [Not Recovered/Not Resolved]

NARRATIVE: CASE EVENT DATE: 201912
